FAERS Safety Report 5697874-3 (Version None)
Quarter: 2008Q2

REPORT INFORMATION
  Report Type: 
  Country: None (occurrence: None)
  Receive Date: 20080404
  Receipt Date: 20080404
  Transmission Date: 20081010
  Serious: Yes (Other)
  Sender: FDA-Public Use
  Company Number: None

PATIENT
  Age: 43 Year
  Sex: Male

DRUGS (5)
  1. LAMISIL [Suspect]
     Dates: start: 20060121, end: 20060303
  2. TYLENOL (CAPLET) [Concomitant]
  3. INSULIN [Concomitant]
  4. BENADRYL [Concomitant]
  5. ACTOS [Concomitant]

REACTIONS (7)
  - ALCOHOL USE [None]
  - CHOLESTASIS [None]
  - DEHYDRATION [None]
  - HYPERCHOLESTEROLAEMIA [None]
  - HYPERGLYCAEMIA [None]
  - HYPERSENSITIVITY [None]
  - LIVER INJURY [None]
